FAERS Safety Report 7978650-5 (Version None)
Quarter: 2011Q4

REPORT INFORMATION
  Report Type: 
  Country: None (occurrence: None)
  Receive Date: 20111214
  Receipt Date: 20111207
  Transmission Date: 20120403
  Serious: Yes (Hospitalization, Disabling, Other)
  Sender: FDA-Public Use
  Company Number: BR-B.I. PHARMACEUTICALS,INC./RIDGEFIELD-2011-BR-01364BR

PATIENT
  Age: 60 Year
  Sex: Male

DRUGS (3)
  1. AMIODARONE HYDROCHLORIDE [Concomitant]
  2. PRADAXA [Suspect]
     Indication: THROMBOSIS PROPHYLAXIS
  3. OTHER MEDICATIONS UNKNOWN [Concomitant]

REACTIONS (3)
  - ISCHAEMIC STROKE [None]
  - APHASIA [None]
  - HEMIPLEGIA [None]
